FAERS Safety Report 4816726-1 (Version None)
Quarter: 2005Q4

REPORT INFORMATION
  Report Type: 
  Country: None (occurrence: None)
  Receive Date: 20051031
  Receipt Date: 20051031
  Transmission Date: 20060501
  Serious: No
  Sender: FDA-Public Use
  Company Number: None

PATIENT
  Age: 17 Year
  Sex: Male
  Weight: 73.4827 kg

DRUGS (1)
  1. CLEAR CARE CIBA VISION, NOVARTIS [Suspect]
     Dosage: TO SOAK CONTACTS  OPHTHALMIC
     Route: 047
     Dates: start: 20051020, end: 20051021

REACTIONS (4)
  - CHEMICAL EYE INJURY [None]
  - CONTACT LENS COMPLICATION [None]
  - KERATITIS [None]
  - MEDICATION ERROR [None]
